FAERS Safety Report 9837918 (Version 1)
Quarter: 2014Q1

REPORT INFORMATION
  Report Type: Spontaneous
  Country: US (occurrence: US)
  Receive Date: 20140123
  Receipt Date: 20140123
  Transmission Date: 20141002
  Serious: Yes (Other)
  Sender: FDA-Public Use
  Company Number: US-PFIZER INC-2014017550

PATIENT
  Age: 45 Year
  Sex: Male

DRUGS (6)
  1. GABAPENTIN [Suspect]
     Dosage: UNK
  2. LYRICA [Suspect]
     Dosage: UNK
  3. LISINOPRIL [Suspect]
     Dosage: UNK
  4. SIMVASTATIN [Suspect]
     Dosage: UNK
  5. VENTOLIN HFA [Suspect]
     Dosage: 90 UG, UNK
  6. COREG CR [Suspect]
     Dosage: UNK

REACTIONS (3)
  - Partial seizures [Unknown]
  - Loss of consciousness [Unknown]
  - Accident at work [Unknown]
